FAERS Safety Report 4497635-7 (Version None)
Quarter: 2004Q4

REPORT INFORMATION
  Report Type: 
  Country: None (occurrence: None)
  Receive Date: 20041110
  Receipt Date: 20030114
  Transmission Date: 20050328
  Serious: Yes (Hospitalization, Other)
  Sender: FDA-Public Use
  Company Number: US-BRISTOL-MYERS SQUIBB COMPANY-12159109

PATIENT
  Age: 58 Year
  Sex: Female
  Weight: 68 kg

DRUGS (2)
  1. TAXOL [Suspect]
     Indication: OVARIAN CANCER
     Route: 042
     Dates: start: 20021022, end: 20021022
  2. CARBOPLATIN [Suspect]
     Indication: OVARIAN CANCER
     Dates: start: 20021022, end: 20021022

REACTIONS (2)
  - HEPATIC ENZYME INCREASED [None]
  - PSORIASIS [None]
